FAERS Safety Report 4807887-9 (Version None)
Quarter: 2005Q4

REPORT INFORMATION
  Report Type: 
  Country: None (occurrence: None)
  Receive Date: 20051024
  Receipt Date: 20030724
  Transmission Date: 20060501
  Serious: Yes (Hospitalization)
  Sender: FDA-Public Use
  Company Number: JP-MERCK-0307USA03561

PATIENT
  Age: 7 Year
  Sex: Female

DRUGS (4)
  1. SINGULAIR [Suspect]
     Indication: ASTHMA
     Route: 048
     Dates: start: 20020413
  2. SINGULAIR [Suspect]
     Route: 048
     Dates: start: 20031025, end: 20031108
  3. SINGULAIR [Suspect]
     Indication: RHINITIS ALLERGIC
     Route: 048
     Dates: start: 20020413
  4. SINGULAIR [Suspect]
     Route: 048
     Dates: start: 20031025, end: 20031108

REACTIONS (2)
  - DIARRHOEA [None]
  - HAEMATOCHEZIA [None]
